FAERS Safety Report 21627810 (Version 1)
Quarter: 2022Q4

REPORT INFORMATION
  Report Type: Report from Study
  Country: US (occurrence: US)
  Receive Date: 20221122
  Receipt Date: 20221122
  Transmission Date: 20230113
  Serious: Yes (Other)
  Sender: FDA-Public Use
  Company Number: US-HBP-2022US026879

PATIENT
  Age: 41 Year
  Sex: Female

DRUGS (2)
  1. TRUSELTIQ [Suspect]
     Active Substance: INFIGRATINIB
     Indication: Brain neoplasm malignant
     Dosage: 125 MILLIGRAM, DAILY FOR 21 DAYS ON
     Route: 048
     Dates: start: 20220525
  2. GABAPENTIN [Concomitant]
     Active Substance: GABAPENTIN
     Indication: Neuralgia
     Dosage: UNK, UNKNOWN

REACTIONS (5)
  - Malignant neoplasm progression [Not Recovered/Not Resolved]
  - Visual impairment [Unknown]
  - Off label use [Unknown]
  - Dyspepsia [Unknown]
  - Decreased appetite [Unknown]

NARRATIVE: CASE EVENT DATE: 20221118
